FAERS Safety Report 18335661 (Version 1)
Quarter: 2020Q4

REPORT INFORMATION
  Report Type: Spontaneous
  Country: CA (occurrence: CA)
  Receive Date: 20201001
  Receipt Date: 20201001
  Transmission Date: 20210113
  Serious: Yes (Death, Hospitalization)
  Sender: FDA-Public Use
  Company Number: CA-PFIZER INC-2020378695

PATIENT
  Age: 84 Year
  Sex: Female
  Weight: 75 kg

DRUGS (6)
  1. ZALTRAP [Suspect]
     Active Substance: ZIV-AFLIBERCEPT
     Indication: MACULAR DEGENERATION
     Dosage: UNK, MONTHLY
     Route: 031
  2. ATORVASTATIN [Concomitant]
     Active Substance: ATORVASTATIN
     Dosage: UNK
     Route: 065
  3. LUMIGAN [Concomitant]
     Active Substance: BIMATOPROST
     Dosage: UNK
     Route: 065
  4. BEVACIZUMAB. [Suspect]
     Active Substance: BEVACIZUMAB
     Indication: MACULAR DEGENERATION
     Dosage: UNK, MONTHLY
     Route: 031
  5. AMLODIPINE [Concomitant]
     Active Substance: AMLODIPINE BESYLATE
     Dosage: UNK
     Route: 065
  6. EYLEA [Suspect]
     Active Substance: AFLIBERCEPT
     Indication: MACULAR DEGENERATION
     Dosage: UNK, MONTHLY
     Route: 031

REACTIONS (11)
  - Off label use [Unknown]
  - Haemorrhage [Fatal]
  - Product use in unapproved indication [Unknown]
  - Diarrhoea [Fatal]
  - Large intestine perforation [Fatal]
  - Abdominal pain upper [Fatal]
  - Organ failure [Fatal]
  - Sepsis [Fatal]
  - Vomiting [Fatal]
  - Product use issue [Unknown]
  - Cholecystitis infective [Fatal]
